FAERS Safety Report 13178531 (Version 1)
Quarter: 2017Q1

REPORT INFORMATION
  Report Type: Spontaneous
  Country: US (occurrence: US)
  Receive Date: 20170201
  Receipt Date: 20170201
  Transmission Date: 20170428
  Serious: Yes (Disabling, Other)
  Sender: FDA-Public Use
  Company Number: None

PATIENT
  Age: 69 Year
  Sex: Female
  Weight: 76.5 kg

DRUGS (9)
  1. VIT. A [Concomitant]
  2. C [Concomitant]
  3. E [Concomitant]
  4. COMPOUNDED NATURAL ESTROGEN AND PROGESTERONE [Concomitant]
  5. MAGNESIUM [Concomitant]
     Active Substance: MAGNESIUM
  6. LEVOFLOXACIN 750 MG. TORRENT P [Suspect]
     Active Substance: LEVOFLOXACIN
     Indication: DIVERTICULITIS
     Dosage: ?          QUANTITY:1 TABLET(S);?
     Route: 048
     Dates: start: 20161119, end: 20161203
  7. CALCIUM [Concomitant]
     Active Substance: CALCIUM
  8. B6 [Concomitant]
     Active Substance: PYRIDOXINE HYDROCHLORIDE
  9. D [Concomitant]

REACTIONS (5)
  - Musculoskeletal pain [None]
  - Insomnia [None]
  - Muscular weakness [None]
  - Pain in extremity [None]
  - Tendonitis [None]

NARRATIVE: CASE EVENT DATE: 20161203
